FAERS Safety Report 8090223-5 (Version None)
Quarter: 2012Q1

REPORT INFORMATION
  Report Type: 
  Country: None (occurrence: None)
  Receive Date: 20120129
  Receipt Date: 20111107
  Transmission Date: 20120608
  Serious: No
  Sender: FDA-Public Use
  Company Number: US-ABBOTT-11P-163-0872344-00

PATIENT
  Age: 50 Year
  Sex: Female

DRUGS (3)
  1. HUMIRA [Suspect]
     Indication: PSORIASIS
     Dates: start: 20060101
  2. TREXIMET [Concomitant]
     Indication: MIGRAINE
  3. MOTRIN [Concomitant]
     Indication: PAIN

REACTIONS (2)
  - INJECTION SITE PRURITUS [None]
  - INJECTION SITE NODULE [None]
